FAERS Safety Report 22046582 (Version 2)
Quarter: 2023Q1

REPORT INFORMATION
  Report Type: Spontaneous
  Country: EG (occurrence: EG)
  Receive Date: 20230228
  Receipt Date: 20230302
  Transmission Date: 20230418
  Serious: Yes (Hospitalization, Other)
  Sender: FDA-Public Use
  Company Number: EG-NOVOPROD-1027340

PATIENT
  Sex: Male

DRUGS (4)
  1. TRESIBA [Suspect]
     Active Substance: INSULIN DEGLUDEC
     Dosage: UNK(AFTER HOSPITALISATION)
  2. TRESIBA [Suspect]
     Active Substance: INSULIN DEGLUDEC
     Dosage: UNK(DURING HOSPITALISATION)
  3. TRESIBA [Suspect]
     Active Substance: INSULIN DEGLUDEC
     Indication: Blood glucose abnormal
     Dosage: 27 IU, QD (10 IU MORNING, 12 IU AFTERNOON AND 5IU AT NIGHT)
     Route: 058
  4. NOVORAPID [Suspect]
     Active Substance: INSULIN ASPART
     Indication: Blood glucose abnormal
     Dosage: UNK

REACTIONS (2)
  - Gangrene [Not Recovered/Not Resolved]
  - Hypoglycaemia [Recovered/Resolved]

NARRATIVE: CASE EVENT DATE: 20230204
